FAERS Safety Report 6192600-6 (Version None)
Quarter: 2009Q2

REPORT INFORMATION
  Report Type: 
  Country: None (occurrence: None)
  Receive Date: 20090513
  Receipt Date: 20090513
  Transmission Date: 20091009
  Serious: Yes (Other)
  Sender: FDA-Public Use
  Company Number: None

PATIENT
  Sex: Male

DRUGS (1)
  1. VYVANSE [Suspect]
     Indication: ATTENTION DEFICIT/HYPERACTIVITY DISORDER
     Dosage: 1 CAPSULE ONCE DAILY ORAL
     Route: 048
     Dates: start: 20090407

REACTIONS (7)
  - FEAR [None]
  - HALLUCINATION [None]
  - MIDDLE INSOMNIA [None]
  - MOVEMENT DISORDER [None]
  - NERVOUSNESS [None]
  - NIGHTMARE [None]
  - PSYCHIATRIC SYMPTOM [None]
